FAERS Safety Report 5646084-4 (Version None)
Quarter: 2008Q1

REPORT INFORMATION
  Report Type: 
  Country: None (occurrence: None)
  Receive Date: 20080227
  Receipt Date: 20080219
  Transmission Date: 20080703
  Serious: Yes (Hospitalization)
  Sender: FDA-Public Use
  Company Number: B0509081A

PATIENT
  Age: 73 Year
  Sex: Female

DRUGS (3)
  1. VALTREX [Suspect]
     Indication: HERPES ZOSTER
     Dosage: 1000 MG/ THREE TIMES PER DAY; ORAL
     Route: 048
     Dates: start: 20070801, end: 20070801
  2. LOXOPROFEN (FORMULATION UNKNOWN)(LOXOPROFEN) [Suspect]
     Indication: DRUG USE FOR UNKNOWN INDICATION
     Dosage: PER DAY
  3. BROTIZOLAM [Concomitant]

REACTIONS (2)
  - HEPATIC FUNCTION ABNORMAL [None]
  - PANCYTOPENIA [None]
